FAERS Safety Report 11843077 (Version 1)
Quarter: 2015Q4

REPORT INFORMATION
  Report Type: Spontaneous
  Country: US (occurrence: US)
  Receive Date: 20151216
  Receipt Date: 20151216
  Transmission Date: 20160305
  Serious: Yes (Life-Threatening)
  Sender: FDA-Public Use
  Company Number: US-PURDUE PHARMA-USA-2015-0127901

PATIENT
  Sex: Female

DRUGS (2)
  1. OXYCODONE ORAL SOLUTION (IND #29,038) [Suspect]
     Active Substance: OXYCODONE
     Dosage: 1 %, UNK
     Route: 048
  2. OXYCODONE ORAL SOLUTION (IND #29,038) [Suspect]
     Active Substance: OXYCODONE
     Indication: POSTOPERATIVE ANALGESIA
     Dosage: 20 %, UNK
     Route: 048

REACTIONS (6)
  - Cardiac arrest [Recovered/Resolved]
  - Overdose [Unknown]
  - Respiratory arrest [Recovered/Resolved]
  - Brain injury [Unknown]
  - Drug dispensing error [Unknown]
  - Incorrect dose administered [None]
